FAERS Safety Report 9387325 (Version 2)
Quarter: 2013Q3

REPORT INFORMATION
  Report Type: Spontaneous
  Country: US (occurrence: None)
  Receive Date: 20130702
  Receipt Date: 20130708
  Transmission Date: 20140515
  Serious: Yes (Other)
  Sender: FDA-Public Use
  Company Number: AUR-APL-2013-05521

PATIENT
  Age: 73 Year
  Sex: Male

DRUGS (4)
  1. NAPROXEN [Suspect]
     Indication: PRODUCT USED FOR UNKNOWN INDICATION
  2. NAPROXEN [Suspect]
     Indication: ARTHRALGIA
  3. FUROSEMIDE [Concomitant]
  4. ATORVASTATIN [Concomitant]

REACTIONS (5)
  - Nephrotic syndrome [None]
  - Alanine aminotransferase increased [None]
  - Blood cholesterol increased [None]
  - Low density lipoprotein increased [None]
  - Glomerulonephritis membranous [None]
